FAERS Safety Report 24342125 (Version 3)
Quarter: 2024Q4

REPORT INFORMATION
  Report Type: Spontaneous
  Country: US (occurrence: US)
  Receive Date: 20240920
  Receipt Date: 20241023
  Transmission Date: 20250115
  Serious: No
  Sender: SANOFI AVENTIS
  Company Number: US-SANOFI-02212871

PATIENT
  Age: 54 Year
  Sex: Female

DRUGS (2)
  1. DUPIXENT [Suspect]
     Active Substance: DUPILUMAB
     Indication: Eczema
     Dosage: 600 MG, 1X
     Route: 058
     Dates: start: 20240826, end: 20240826
  2. DUPIXENT [Suspect]
     Active Substance: DUPILUMAB
     Indication: Dermatitis atopic
     Dosage: 300 MG, QOW
     Route: 058
     Dates: start: 202409

REACTIONS (14)
  - Rash erythematous [Unknown]
  - Muscle spasms [Unknown]
  - Dysphonia [Unknown]
  - Muscle twitching [Unknown]
  - Eye swelling [Unknown]
  - Pharyngitis [Unknown]
  - Vision blurred [Unknown]
  - Arthralgia [Unknown]
  - Injection site swelling [Unknown]
  - Rash [Unknown]
  - Dry eye [Unknown]
  - Conjunctivitis [Unknown]
  - Keratitis [Unknown]
  - Intercepted product storage error [Unknown]

NARRATIVE: CASE EVENT DATE: 20240101
